FAERS Safety Report 5164666-3 (Version None)
Quarter: 2006Q4

REPORT INFORMATION
  Report Type: 
  Country: None (occurrence: None)
  Receive Date: 20061205
  Receipt Date: 20061017
  Transmission Date: 20070319
  Serious: Yes (Other)
  Sender: FDA-Public Use
  Company Number: US-ELI_LILLY_AND_COMPANY-US200610002903

PATIENT
  Age: 74 Year
  Sex: Female
  Weight: 62.131 kg

DRUGS (7)
  1. FOSAMAX ONCE WEEKLY [Concomitant]
     Dosage: UNK, WEEKLY (1/W)
     Dates: start: 19990101, end: 20050801
  2. FOSAMAX ONCE WEEKLY [Concomitant]
     Dosage: UNK, DAILY (1/D)
     Dates: start: 19990101, end: 20050801
  3. LEVOTHYROXINE SODIUM [Concomitant]
     Dosage: 0.1 MG, DAILY (1/D)
  4. CALCIUM W/VITAMIN D NOS [Concomitant]
     Dosage: UNK, 2/D
  5. VITAMIN D [Concomitant]
     Dosage: 400 IU, DAILY (1/D)
  6. FORTEO [Suspect]
     Indication: OSTEOPOROSIS
     Dosage: 20 UG, DAILY (1/D)
     Route: 058
     Dates: start: 20050801, end: 20061002
  7. FORTEO [Suspect]
     Dosage: 20 UG, DAILY (1/D)
     Route: 058
     Dates: start: 20061016

REACTIONS (14)
  - ALVEOLITIS ALLERGIC [None]
  - ARTHRITIS [None]
  - ASTHMA [None]
  - BODY HEIGHT DECREASED [None]
  - BRONCHITIS [None]
  - DYSPNOEA EXERTIONAL [None]
  - FRACTURE [None]
  - IDIOPATHIC PULMONARY FIBROSIS [None]
  - INTERSTITIAL LUNG DISEASE [None]
  - JOINT DISLOCATION [None]
  - LYME DISEASE [None]
  - NODAL OSTEOARTHRITIS [None]
  - THERAPY NON-RESPONDER [None]
  - TOOTH LOSS [None]
